FAERS Safety Report 5372298-7 (Version None)
Quarter: 2007Q2

REPORT INFORMATION
  Report Type: 
  Country: None (occurrence: None)
  Receive Date: 20070620
  Receipt Date: 20070320
  Transmission Date: 20071010
  Serious: No
  Sender: FDA-Public Use
  Company Number: 2007RL000124

PATIENT
  Age: 73 Year
  Sex: Female
  Weight: 68.0396 kg

DRUGS (15)
  1. OMACOR [Suspect]
     Indication: DRUG USE FOR UNKNOWN INDICATION
     Dosage: 1 GM; BID; PO
     Route: 048
     Dates: start: 20070316
  2. COREG [Suspect]
     Indication: DRUG USE FOR UNKNOWN INDICATION
     Dosage: PO
     Route: 048
  3. NOVOLOG [Concomitant]
  4. RYTHMOL [Concomitant]
  5. FUROSEMIDE [Concomitant]
  6. COZAAR [Concomitant]
  7. FOLIC ACID [Concomitant]
  8. SYNTHROID [Concomitant]
  9. TRICOR [Concomitant]
  10. ASPIRIN [Concomitant]
  11. CALCIUM CHLORIDE [Concomitant]
  12. VITAMIN D [Concomitant]
  13. MULTI-VITAMIN [Concomitant]
  14. IRON [Concomitant]
  15. INSULIN PUMP [Concomitant]

REACTIONS (1)
  - BLOOD GLUCOSE INCREASED [None]
